FAERS Safety Report 15439011 (Version 1)
Quarter: 2018Q3

REPORT INFORMATION
  Report Type: Spontaneous
  Country: US (occurrence: US)
  Receive Date: 20180928
  Receipt Date: 20180928
  Transmission Date: 20181010
  Serious: No
  Sender: FDA-Public Use
  Company Number: US-PFIZER INC-2018387482

PATIENT
  Sex: Female

DRUGS (1)
  1. LYRICA CR [Suspect]
     Active Substance: PREGABALIN
     Indication: FIBROMYALGIA
     Dosage: 1 DF, UNK

REACTIONS (3)
  - Swelling [Unknown]
  - Swollen tongue [Unknown]
  - Pharyngeal oedema [Unknown]
